FAERS Safety Report 18675807 (Version 1)
Quarter: 2020Q4

REPORT INFORMATION
  Report Type: Spontaneous
  Country: SA (occurrence: SA)
  Receive Date: 20201229
  Receipt Date: 20201229
  Transmission Date: 20210114
  Serious: No
  Sender: FDA-Public Use
  Company Number: SA-TOLMAR, INC.-20SA024476

PATIENT
  Age: 42 Year
  Sex: Female

DRUGS (1)
  1. ELIGARD [Suspect]
     Active Substance: LEUPROLIDE ACETATE
     Indication: ANGIOMYXOMA
     Dosage: 22.5 MG, Q 3 MONTH
     Route: 030

REACTIONS (1)
  - Off label use [Unknown]
